FAERS Safety Report 21022537 (Version 1)
Quarter: 2022Q2

REPORT INFORMATION
  Report Type: Spontaneous
  Country: US (occurrence: None)
  Receive Date: 20220628
  Receipt Date: 20220628
  Transmission Date: 20220720
  Serious: No
  Sender: FDA-Public Use
  Company Number: None

PATIENT
  Age: 46 Year
  Sex: Female
  Weight: 90.72 kg

DRUGS (20)
  1. IBRANCE [Suspect]
     Active Substance: PALBOCICLIB
     Indication: Breast cancer female
     Dosage: FREQUENCY : DAILY;?
     Route: 048
  2. ABILIFY [Concomitant]
     Active Substance: ARIPIPRAZOLE
  3. ANASTROZOLE [Concomitant]
  4. BIOTIN [Concomitant]
  5. BUPROPION [Concomitant]
     Active Substance: BUPROPION
  6. CALCIUM [Concomitant]
  7. FISH OIL [Concomitant]
     Active Substance: FISH OIL
  8. GABAPENTIN [Concomitant]
     Active Substance: GABAPENTIN
  9. ASIAN GINSENG [Concomitant]
     Active Substance: ASIAN GINSENG
  10. IBUPROFEN [Concomitant]
     Active Substance: IBUPROFEN
  11. METHOCARBAMOL [Concomitant]
     Active Substance: METHOCARBAMOL
  12. LOPRESSOR [Concomitant]
  13. PRILOSEC [Concomitant]
     Active Substance: OMEPRAZOLE MAGNESIUM
  14. PREDNISONE [Concomitant]
     Active Substance: PREDNISONE
  15. PROBIOTICS NOS [Concomitant]
     Active Substance: PROBIOTICS NOS
  16. COMPAZINE [Concomitant]
     Active Substance: PROCHLORPERAZINE MALEATE
  17. VITAMIN B12 [Concomitant]
     Active Substance: CYANOCOBALAMIN
  18. VITAMIN C [Concomitant]
     Active Substance: ASCORBIC ACID
  19. VITAMIN D3 [Concomitant]
     Active Substance: CHOLECALCIFEROL
  20. VYVANSE [Concomitant]
     Active Substance: LISDEXAMFETAMINE DIMESYLATE

REACTIONS (2)
  - Therapy interrupted [None]
  - Skin operation [None]

NARRATIVE: CASE EVENT DATE: 20220627
